FAERS Safety Report 8428502-1 (Version None)
Quarter: 2012Q2

REPORT INFORMATION
  Report Type: 
  Country: None (occurrence: None)
  Receive Date: 20120612
  Receipt Date: 20120605
  Transmission Date: 20120825
  Serious: No
  Sender: FDA-Public Use
  Company Number: US-PFIZER INC-2012136123

PATIENT
  Sex: Female

DRUGS (1)
  1. PROTONIX [Suspect]
     Indication: OESOPHAGITIS
     Dosage: UNK, 2X/DAY (TWICE A DAY FOR SIX DAYS)

REACTIONS (2)
  - DRUG INEFFECTIVE [None]
  - DYSPHAGIA [None]
